FAERS Safety Report 16892242 (Version 1)
Quarter: 2019Q4

REPORT INFORMATION
  Report Type: Spontaneous
  Country: GB (occurrence: GB)
  Receive Date: 20191007
  Receipt Date: 20191007
  Transmission Date: 20200122
  Serious: Yes (Hospitalization)
  Sender: FDA-Public Use
  Company Number: GB-MYLANLABS-2019M1092337

PATIENT
  Age: 44 Year
  Sex: Female

DRUGS (12)
  1. COCODAMOL [Concomitant]
     Active Substance: ACETAMINOPHEN\CODEINE PHOSPHATE
     Dosage: UNK
  2. METOCLOPRAMIDE. [Concomitant]
     Active Substance: METOCLOPRAMIDE
     Dosage: UNK
  3. PHYTOMENADIONE [Concomitant]
     Active Substance: PHYTONADIONE
     Dosage: UNK
  4. TAZOCIN [Concomitant]
     Active Substance: PIPERACILLIN SODIUM\TAZOBACTAM SODIUM
     Dosage: UNK
  5. NAPROXEN. [Suspect]
     Active Substance: NAPROXEN
     Indication: MUSCULOSKELETAL PAIN
     Dosage: 250MG THREE TIMES A DAY
     Route: 048
     Dates: start: 20190210, end: 20190326
  6. DESOGESTREL [Concomitant]
     Active Substance: DESOGESTREL
     Dosage: UNK
  7. OMEPRAZOLE. [Concomitant]
     Active Substance: OMEPRAZOLE
     Dosage: UNK
  8. MEBEVERINE [Concomitant]
     Active Substance: MEBEVERINE
     Dosage: UNK
  9. CHLORDIAZEPOXIDE. [Concomitant]
     Active Substance: CHLORDIAZEPOXIDE
     Dosage: UNK
  10. THIAMINE. [Concomitant]
     Active Substance: THIAMINE
     Dosage: UNK
  11. PABRINEX                           /00041801/ [Concomitant]
     Dosage: UNK
  12. SERTRALINE [Suspect]
     Active Substance: SERTRALINE HYDROCHLORIDE
     Indication: DEPRESSION
     Dosage: IN THE MORNING
     Route: 048
     Dates: start: 20180601

REACTIONS (4)
  - Abdominal tenderness [Unknown]
  - Upper gastrointestinal haemorrhage [Recovering/Resolving]
  - Abdominal pain upper [Unknown]
  - Haematemesis [Unknown]

NARRATIVE: CASE EVENT DATE: 20190502
